FAERS Safety Report 9403493 (Version 1)
Quarter: 2013Q3

REPORT INFORMATION
  Report Type: Spontaneous
  Country: US (occurrence: US)
  Receive Date: 20130716
  Receipt Date: 20130716
  Transmission Date: 20140515
  Serious: Yes (Other)
  Sender: FDA-Public Use
  Company Number: US-RB-056074-13

PATIENT
  Age: 31 Year
  Sex: Female

DRUGS (6)
  1. SUBOXONE FILM [Suspect]
     Indication: DRUG DEPENDENCE
     Dosage: SUBOXONE FILM; CUTTING THE FILM
     Route: 060
     Dates: start: 201303, end: 2013
  2. SUBOXONE FILM [Suspect]
     Dosage: SUBOXONE FILM; CUTTING THE FILM
     Route: 060
     Dates: start: 2013, end: 2013
  3. SUBOXONE FILM [Suspect]
     Dosage: SUBOXONE FILM
     Route: 060
     Dates: start: 20130707, end: 20130709
  4. ZOLOFT [Concomitant]
     Indication: DEPRESSION
     Route: 048
     Dates: end: 20130703
  5. CLONIDINE [Concomitant]
     Indication: HYPERTENSION
     Dosage: DOSING DETAILS UNKNOWN
     Route: 048
  6. IRON SUPPLEMENT [Concomitant]
     Indication: BLOOD IRON DECREASED
     Dosage: DOSING DETAILS UNKNOWN
     Route: 048

REACTIONS (13)
  - Wrong technique in drug usage process [Recovered/Resolved]
  - Local swelling [Recovered/Resolved]
  - Convulsion [Recovered/Resolved]
  - Loss of consciousness [Recovered/Resolved]
  - Fall [Recovered/Resolved]
  - Head injury [Recovered/Resolved]
  - Blood potassium decreased [Unknown]
  - Headache [Recovered/Resolved]
  - Blood glucose decreased [Recovered/Resolved]
  - Laceration [Recovered/Resolved]
  - Muscle spasms [Not Recovered/Not Resolved]
  - Diarrhoea [Not Recovered/Not Resolved]
  - Drug withdrawal syndrome [Not Recovered/Not Resolved]
